FAERS Safety Report 25498554 (Version 1)
Quarter: 2025Q3

REPORT INFORMATION
  Report Type: Spontaneous
  Country: BR (occurrence: BR)
  Receive Date: 20250701
  Receipt Date: 20250701
  Transmission Date: 20251021
  Serious: Yes (Hospitalization)
  Sender: ACCORD
  Company Number: BR-Accord-492419

PATIENT
  Age: 25 Year
  Sex: Female
  Weight: 45 kg

DRUGS (6)
  1. TACROLIMUS [Suspect]
     Active Substance: TACROLIMUS
     Indication: Autoimmune hepatitis
     Dates: start: 202301, end: 2023
  2. AZATHIOPRINE [Suspect]
     Active Substance: AZATHIOPRINE
     Indication: Autoimmune hepatitis
     Dates: start: 2022
  3. PREDNISONE [Suspect]
     Active Substance: PREDNISONE
     Indication: Autoimmune hepatitis
  4. PREDNISONE [Suspect]
     Active Substance: PREDNISONE
     Indication: Autoimmune hepatitis
     Dates: start: 202301
  5. AZATHIOPRINE [Suspect]
     Active Substance: AZATHIOPRINE
     Indication: Autoimmune hepatitis
     Dosage: 2.2 MG/ KG/D
     Dates: start: 202301
  6. TACROLIMUS [Suspect]
     Active Substance: TACROLIMUS
     Indication: Autoimmune hepatitis
     Dosage: DOSE INCREASED UNTIL 6 MG/D TO ACHIEVE SERUM LEVELS AROUND 6 NG/ML
     Dates: start: 2023

REACTIONS (2)
  - Cytomegalovirus infection reactivation [Recovered/Resolved]
  - Biliary tract infection viral [Recovered/Resolved]

NARRATIVE: CASE EVENT DATE: 20230301
